FAERS Safety Report 5963239-X (Version None)
Quarter: 2008Q4

REPORT INFORMATION
  Report Type: 
  Country: None (occurrence: None)
  Receive Date: 20081120
  Receipt Date: 20081120
  Transmission Date: 20090506
  Serious: No
  Sender: FDA-Public Use
  Company Number: None

PATIENT
  Age: 70 Year
  Sex: Male

DRUGS (1)
  1. SITAGLIPTIN [Suspect]
     Dosage: 50 MG BID PO
     Route: 048
     Dates: start: 20080416, end: 20080528

REACTIONS (2)
  - PRURITUS [None]
  - URTICARIA [None]
